FAERS Safety Report 5555232-6 (Version None)
Quarter: 2007Q4

REPORT INFORMATION
  Report Type: 
  Country: None (occurrence: None)
  Receive Date: 20071213
  Receipt Date: 20070813
  Transmission Date: 20080405
  Serious: No
  Sender: FDA-Public Use
  Company Number: US-AMGEN-KDL238733

PATIENT
  Sex: Female

DRUGS (4)
  1. ENBREL [Suspect]
     Indication: PSORIATIC ARTHROPATHY
     Route: 058
  2. ENBREL [Suspect]
     Indication: PSORIASIS
  3. ENBREL [Suspect]
     Indication: SYSTEMIC LUPUS ERYTHEMATOSUS
  4. ENBREL [Suspect]
     Indication: SJOGREN'S SYNDROME

REACTIONS (9)
  - BURNING SENSATION [None]
  - COLONOSCOPY [None]
  - DYSPEPSIA [None]
  - ENDOSCOPY [None]
  - FLATULENCE [None]
  - GASTROINTESTINAL MOTILITY DISORDER [None]
  - JOINT FLUID DRAINAGE [None]
  - PNEUMONIA [None]
  - PSORIATIC ARTHROPATHY [None]
